FAERS Safety Report 22236030 (Version 1)
Quarter: 2023Q2

REPORT INFORMATION
  Report Type: Spontaneous
  Country: RU (occurrence: None)
  Receive Date: 20230420
  Receipt Date: 20230420
  Transmission Date: 20230721
  Serious: Yes (Other)
  Sender: FDA-Public Use
  Company Number: RU-ROCHE-3331965

PATIENT
  Age: 37 Year
  Sex: Male

DRUGS (7)
  1. GAZYVA [Suspect]
     Active Substance: OBINUTUZUMAB
     Indication: Follicular lymphoma
     Dosage: 6 CYCLES, 1,8,15 DAY OF CYCLE 1, THEN DAY 1 CYCLE 2-6, CYCLE 8 COMPLETED IN JUN/2014
     Route: 042
     Dates: start: 201312, end: 201406
  2. GAZYVA [Suspect]
     Active Substance: OBINUTUZUMAB
     Route: 042
     Dates: start: 201408
  3. GAZYVA [Suspect]
     Active Substance: OBINUTUZUMAB
     Dosage: 2 ADMINISTRATIONS OF OBINUTUZUMAB
     Route: 042
     Dates: start: 201412
  4. DOXORUBICIN [Suspect]
     Active Substance: DOXORUBICIN
     Indication: Follicular lymphoma
     Dosage: DAY 1, CYCLE 8 COMPLETED IN JUN/2014
     Route: 041
     Dates: start: 201312, end: 201406
  5. CYCLOPHOSPHAMIDE [Suspect]
     Active Substance: CYCLOPHOSPHAMIDE
     Indication: Follicular lymphoma
     Dosage: DAY 1, CYCLE 8 COMPLETED IN JUN/2014
     Route: 041
     Dates: start: 201312, end: 201406
  6. VINCRISTINE [Suspect]
     Active Substance: VINCRISTINE
     Indication: Follicular lymphoma
     Dosage: DAY 1, CYCLE 8 COMPLETED IN JUN/2014
     Route: 041
     Dates: start: 201312, end: 201406
  7. PREDNISOLONE [Suspect]
     Active Substance: PREDNISOLONE
     Indication: Follicular lymphoma
     Dosage: DAY 1-5, CYCLE 8 COMPLETED IN JUN/2014
     Route: 065
     Dates: start: 201312, end: 201406

REACTIONS (5)
  - Intestinal stenosis [Unknown]
  - Cystitis [Unknown]
  - Pain [Unknown]
  - Urine abnormality [Unknown]
  - Micturition disorder [Unknown]

NARRATIVE: CASE EVENT DATE: 20140301
